FAERS Safety Report 8552492-4 (Version None)
Quarter: 2012Q3

REPORT INFORMATION
  Report Type: 
  Country: None (occurrence: None)
  Receive Date: 20120731
  Receipt Date: 20120726
  Transmission Date: 20120928
  Serious: Yes (Other)
  Sender: FDA-Public Use
  Company Number: US-TEVA-350562USA

PATIENT
  Sex: Female
  Weight: 63.56 kg

DRUGS (3)
  1. PARAGARD T 380A [Suspect]
     Indication: CONTRACEPTION
     Route: 015
     Dates: start: 20100101, end: 20120718
  2. LEXAPRO [Concomitant]
     Indication: PALPITATIONS
  3. LEXAPRO [Concomitant]
     Indication: DEPRESSION

REACTIONS (7)
  - LOWER URINARY TRACT SYMPTOMS [None]
  - URINARY TRACT INFECTION [None]
  - KIDNEY INFECTION [None]
  - VAGINAL DISCHARGE [None]
  - CONVULSION [None]
  - VAGINITIS BACTERIAL [None]
  - VAGINAL ODOUR [None]
